FAERS Safety Report 5354721-7 (Version None)
Quarter: 2007Q2

REPORT INFORMATION
  Report Type: 
  Country: None (occurrence: None)
  Receive Date: 20070612
  Receipt Date: 20070531
  Transmission Date: 20071010
  Serious: Yes (Other)
  Sender: FDA-Public Use
  Company Number: US-PFIZER INC-2007045263

PATIENT
  Sex: Male
  Weight: 129.3 kg

DRUGS (5)
  1. PHENELZINE SULFATE [Interacting]
     Indication: DEPRESSION
  2. LYRICA [Suspect]
     Indication: NEURALGIA
  3. CHANTIX [Interacting]
     Indication: SMOKING CESSATION THERAPY
  4. DEPAKOTE [Concomitant]
  5. MARIJUANA [Concomitant]

REACTIONS (19)
  - ANXIETY [None]
  - ASTHENIA [None]
  - BACK DISORDER [None]
  - BACK PAIN [None]
  - DEPRESSION [None]
  - DIZZINESS [None]
  - DRUG INEFFECTIVE [None]
  - DRUG INTERACTION [None]
  - EATING DISORDER [None]
  - FATIGUE [None]
  - HEADACHE [None]
  - LETHARGY [None]
  - MENTAL DISORDER [None]
  - NEURALGIA [None]
  - SOMNOLENCE [None]
  - SUICIDAL IDEATION [None]
  - THINKING ABNORMAL [None]
  - TREMOR [None]
  - UNEVALUABLE EVENT [None]
